FAERS Safety Report 9989793 (Version 1)
Quarter: 2014Q1

REPORT INFORMATION
  Report Type: Report from Study
  Country: US (occurrence: US)
  Receive Date: 20140310
  Receipt Date: 20140310
  Transmission Date: 20141002
  Serious: No
  Sender: FDA-Public Use
  Company Number: US-ABBVIE-13P-163-1130058-00

PATIENT
  Age: 66 Year
  Sex: Female

DRUGS (11)
  1. HUMIRA [Suspect]
     Indication: CROHN^S DISEASE
     Dosage: ON FRIDAYS
     Route: 058
     Dates: start: 201306
  2. AMLODIPINE [Concomitant]
     Indication: HYPERTENSION
     Dosage: 10 MG DAILY
     Route: 048
  3. LISINOPRIL [Concomitant]
     Indication: HYPERTENSION
     Dosage: 10 MG DAILY
     Route: 048
  4. ESTROPIPATE [Concomitant]
     Indication: MENOPAUSE
     Dosage: 1.25 MG DAILY
     Route: 048
  5. LASIX [Concomitant]
     Indication: HYPERTENSION
     Dosage: 20 MG DAILY
     Route: 048
  6. ACIDOPHILUS [Concomitant]
     Indication: PRODUCT USED FOR UNKNOWN INDICATION
     Dosage: DAILY
     Route: 048
  7. PREVACID [Concomitant]
     Indication: PRODUCT USED FOR UNKNOWN INDICATION
     Dosage: DAILY
     Route: 048
  8. ZYRTEC [Concomitant]
     Indication: HYPERSENSITIVITY
     Dosage: DAILY
     Route: 048
  9. L-METHYLFOLATE CALCIUM [Concomitant]
     Indication: NEUROPATHY PERIPHERAL
     Route: 048
  10. LANTUS [Concomitant]
     Indication: DIABETES MELLITUS
     Dosage: AT BEDTIME
     Route: 058
  11. NOVOLOG [Concomitant]
     Indication: DIABETES MELLITUS
     Dosage: WITH MEALS
     Route: 058

REACTIONS (2)
  - Injection site pruritus [Recovered/Resolved]
  - Injection site erythema [Recovered/Resolved]
